FAERS Safety Report 7646021-7 (Version None)
Quarter: 2011Q3

REPORT INFORMATION
  Report Type: 
  Country: None (occurrence: None)
  Receive Date: 20110731
  Receipt Date: 20110718
  Transmission Date: 20111222
  Serious: Yes (Hospitalization)
  Sender: FDA-Public Use
  Company Number: US-MYLANLABS-2011S1015210

PATIENT
  Age: 37 Year
  Sex: Male

DRUGS (5)
  1. WARFARIN SODIUM [Suspect]
     Dosage: 5 MG DAILY (DOSAGE AT MAR 2008 ADMISSION)
     Route: 048
     Dates: start: 20070801
  2. CALCIUM ACETATE [Concomitant]
     Route: 065
  3. WARFARIN SODIUM [Suspect]
     Indication: ANTICOAGULANT THERAPY
     Route: 048
     Dates: start: 20070801
  4. METOPROLOL TARTRATE [Concomitant]
     Route: 065
  5. NIFEDIPINE [Concomitant]
     Dosage: 90MG DAILY (ER)
     Route: 065

REACTIONS (2)
  - CALCIPHYLAXIS [None]
  - PULMONARY CALCIFICATION [None]
